FAERS Safety Report 6458671-4 (Version None)
Quarter: 2009Q4

REPORT INFORMATION
  Report Type: 
  Country: None (occurrence: None)
  Receive Date: 20091120
  Receipt Date: 20091105
  Transmission Date: 20100525
  Serious: Yes (Hospitalization)
  Sender: FDA-Public Use
  Company Number: 2009S1000372-002

PATIENT
  Age: 52 Year
  Sex: Male

DRUGS (1)
  1. PITAVASTATIN CALCIUM [Suspect]
     Indication: HYPERCHOLESTEROLAEMIA
     Dosage: 2MG, PO
     Route: 048
     Dates: start: 20091016, end: 20091025

REACTIONS (6)
  - DYSPEPSIA [None]
  - GASTROENTERITIS [None]
  - HEPATIC STEATOSIS [None]
  - ILEUS [None]
  - PROSTATOMEGALY [None]
  - RENAL FAILURE ACUTE [None]
